FAERS Safety Report 13958991 (Version 1)
Quarter: 2017Q3

REPORT INFORMATION
  Report Type: Spontaneous
  Country: US (occurrence: US)
  Receive Date: 20170911
  Receipt Date: 20170911
  Transmission Date: 20171128
  Serious: Yes (Other)
  Sender: FDA-Public Use
  Company Number: None

PATIENT
  Age: 32 Year
  Sex: Female
  Weight: 46 kg

DRUGS (4)
  1. FOSAPREPITANT [Suspect]
     Active Substance: FOSAPREPITANT
     Indication: ANTIEMETIC SUPPORTIVE CARE
     Dosage: ?          OTHER FREQUENCY:ONCE;?
     Route: 041
     Dates: start: 20170824, end: 20170824
  2. FOSAPREPITANT [Suspect]
     Active Substance: FOSAPREPITANT
     Indication: PREMEDICATION
     Dosage: ?          OTHER FREQUENCY:ONCE;?
     Route: 041
     Dates: start: 20170824, end: 20170824
  3. ALOXI [Concomitant]
     Active Substance: PALONOSETRON HYDROCHLORIDE
  4. DECADRON [Concomitant]
     Active Substance: DEXAMETHASONE

REACTIONS (7)
  - Cough [None]
  - Nausea [None]
  - Dyspnoea [None]
  - Infusion related reaction [None]
  - Flushing [None]
  - Blood pressure abnormal [None]
  - Oxygen saturation decreased [None]

NARRATIVE: CASE EVENT DATE: 20170824
